FAERS Safety Report 10402039 (Version 1)
Quarter: 2014Q3

REPORT INFORMATION
  Report Type: Other
  Country: FR (occurrence: FR)
  Receive Date: 20140822
  Receipt Date: 20140822
  Transmission Date: 20150326
  Serious: Yes (Other)
  Sender: FDA-Public Use
  Company Number: FR-MYLAN-2014M1001155

PATIENT

DRUGS (1)
  1. IPRATROPIUM MYLAN [Suspect]
     Active Substance: IPRATROPIUM
     Indication: MEDICATION ERROR
     Dosage: UNK
     Route: 047
     Dates: start: 20101004, end: 20101005

REACTIONS (6)
  - Incorrect route of drug administration [Recovered/Resolved]
  - Wrong drug administered [Recovered/Resolved]
  - Accommodation disorder [Recovered/Resolved]
  - Photophobia [Recovered/Resolved]
  - Mydriasis [Recovered/Resolved]
  - Dry mouth [Recovered/Resolved]

NARRATIVE: CASE EVENT DATE: 20101004
